FAERS Safety Report 22541936 (Version 1)
Quarter: 2023Q2

REPORT INFORMATION
  Report Type: Report from Study
  Country: CN (occurrence: CN)
  Receive Date: 20230609
  Receipt Date: 20230609
  Transmission Date: 20230721
  Serious: Yes (Death, Other)
  Sender: FDA-Public Use
  Company Number: CN-SUN PHARMACEUTICAL INDUSTRIES LTD-2023R1-393724

PATIENT
  Age: 55 Year
  Sex: Female

DRUGS (4)
  1. PREDNISONE [Suspect]
     Active Substance: PREDNISONE
     Indication: Adrenocortical steroid therapy
     Dosage: }=1 MG PREDNISONE PER KILOGRAM PER DAY
     Route: 065
  2. prophylactic anti-thrombotic drugs include aspirin [Concomitant]
     Indication: Adrenocortical steroid therapy
     Dosage: UNK
     Route: 065
  3. HEPARIN [Concomitant]
     Active Substance: HEPARIN SODIUM
     Indication: Adrenocortical steroid therapy
     Dosage: UNK
     Route: 065
  4. UNSPECIFIED INGREDIENT [Concomitant]
     Active Substance: UNSPECIFIED INGREDIENT
     Indication: Adrenocortical steroid therapy
     Dosage: UNK
     Route: 065

REACTIONS (2)
  - Spontaneous haemorrhage [Fatal]
  - Haematoma [Fatal]
